FAERS Safety Report 9434129 (Version 1)
Quarter: 2013Q3

REPORT INFORMATION
  Report Type: Spontaneous
  Country: US (occurrence: US)
  Receive Date: 20130801
  Receipt Date: 20130801
  Transmission Date: 20140515
  Serious: No
  Sender: FDA-Public Use
  Company Number: US-009507513-1307USA012363

PATIENT
  Sex: Female

DRUGS (2)
  1. COZAAR [Suspect]
     Indication: BLOOD PRESSURE
     Route: 048
  2. LEVOXYL [Concomitant]
     Dosage: 0.137 MG, BLUE TABLET

REACTIONS (1)
  - Blood pressure decreased [Unknown]
